FAERS Safety Report 8954913 (Version 1)
Quarter: 2012Q4

REPORT INFORMATION
  Report Type: Spontaneous
  Country: US (occurrence: None)
  Receive Date: 20121205
  Receipt Date: 20121205
  Transmission Date: 20130627
  Serious: No
  Sender: FDA-Public Use
  Company Number: None

PATIENT
  Age: 61 Year
  Sex: Male

DRUGS (2)
  1. SENSIPAR [Suspect]
     Indication: SECONDARY HYPERTHYROIDISM
     Route: 048
     Dates: start: 20120714
  2. SENSIPAR [Suspect]
     Indication: RENAL DISORDER
     Route: 048
     Dates: start: 20120714

REACTIONS (7)
  - Nausea [None]
  - Vomiting [None]
  - Hypoaesthesia [None]
  - Paraesthesia [None]
  - Weight decreased [None]
  - Grip strength decreased [None]
  - Dialysis [None]
